FAERS Safety Report 5415829-0 (Version None)
Quarter: 2007Q3

REPORT INFORMATION
  Report Type: 
  Country: None (occurrence: None)
  Receive Date: 20070815
  Receipt Date: 20070803
  Transmission Date: 20080115
  Serious: Yes (Other)
  Sender: FDA-Public Use
  Company Number: NL-PFIZER INC-2007053371

PATIENT
  Sex: Female

DRUGS (5)
  1. CHAMPIX [Suspect]
     Indication: SMOKING CESSATION THERAPY
     Route: 048
  2. CRESTOR [Concomitant]
  3. SELOKEEN ZOC [Concomitant]
  4. NEURONTIN [Concomitant]
  5. ASCAL [Concomitant]

REACTIONS (2)
  - CARDIAC FAILURE [None]
  - POLYURIA [None]
